FAERS Safety Report 23885797 (Version 1)
Quarter: 2024Q2

REPORT INFORMATION
  Report Type: Spontaneous
  Country: AU (occurrence: AU)
  Receive Date: 20240522
  Receipt Date: 20240522
  Transmission Date: 20240716
  Serious: Yes (Other)
  Sender: FDA-Public Use
  Company Number: AU-AMGEN-AUSSP2024098864

PATIENT
  Age: 62 Year
  Sex: Male

DRUGS (5)
  1. PROLIA [Suspect]
     Active Substance: DENOSUMAB
     Indication: Product used for unknown indication
     Dosage: 60 MILLIGRAM, Q6MO
     Route: 058
  2. IBUPROFEN [Concomitant]
     Active Substance: IBUPROFEN
     Dosage: 100 MILLIGRAM
  3. PANADOL [Concomitant]
     Active Substance: ACETAMINOPHEN
  4. PREDNISOLONE [Concomitant]
     Active Substance: PREDNISOLONE
  5. PARNATE [Concomitant]
     Active Substance: TRANYLCYPROMINE SULFATE

REACTIONS (5)
  - Knee arthroplasty [Unknown]
  - Cataract [Unknown]
  - Incorrect route of product administration [Unknown]
  - Arthralgia [Unknown]
  - Pain [Unknown]

NARRATIVE: CASE EVENT DATE: 20240101
